FAERS Safety Report 4439197-6 (Version None)
Quarter: 2004Q3

REPORT INFORMATION
  Report Type: 
  Country: None (occurrence: None)
  Receive Date: 20040831
  Receipt Date: 20040816
  Transmission Date: 20050211
  Serious: Yes (Hospitalization)
  Sender: FDA-Public Use
  Company Number: 04P-163-0270790-00

PATIENT
  Age: 74 Year
  Sex: Female

DRUGS (1)
  1. CYCLOSPORINE [Suspect]
     Indication: NATURAL KILLER-CELL LEUKAEMIA
     Dosage: 100 MG, 3 IN 1 D, PER ORAL
     Route: 048
     Dates: start: 20031208, end: 20040308

REACTIONS (2)
  - CHOLECYSTECTOMY [None]
  - SPLENECTOMY [None]
